FAERS Safety Report 9372954 (Version 5)
Quarter: 2014Q2

REPORT INFORMATION
  Report Type: Spontaneous
  Country: US (occurrence: US)
  Receive Date: 20130627
  Receipt Date: 20140422
  Transmission Date: 20141212
  Serious: Yes (Hospitalization)
  Sender: FDA-Public Use
  Company Number: US-UCBSA-073087

PATIENT
  Age: 61 Year
  Sex: Female
  Weight: 58.55 kg

DRUGS (10)
  1. KEPPRA [Suspect]
     Indication: CONVULSION
     Dosage: EXPIRATATION DATE-31/MAR/2014,30-AUG-2014,750 G 4/DAILY(STRENGTH)
     Dates: start: 2004
  2. BUSPIRONE [Concomitant]
     Indication: ANXIETY
     Route: 048
  3. ZONEGRAN [Concomitant]
     Indication: CONVULSION
     Dates: start: 2005
  4. AMLODIPINE BESY. [Concomitant]
     Route: 048
  5. COUMADIN [Concomitant]
     Indication: MITRAL VALVE REPLACEMENT
     Dosage: 5 MG 1 - 1 1/2 TABLET Q D/AS DIRECTED
  6. ECOTRIN [Concomitant]
     Indication: PROPHYLAXIS
  7. CITRICAL [Concomitant]
     Dosage: DOSE: 4 TABLETS DAILY
  8. CENTRUM VITAMIN [Concomitant]
     Dosage: DOSE: 1 TABLET DAILY
  9. TYLENOL [Concomitant]
     Indication: HEADACHE
     Dosage: DOSE: PRN
  10. ATENOLOL [Concomitant]

REACTIONS (4)
  - Generalised tonic-clonic seizure [Recovered/Resolved]
  - Anxiety disorder [Not Recovered/Not Resolved]
  - Intervertebral disc degeneration [Not Recovered/Not Resolved]
  - Stress [Not Recovered/Not Resolved]
